FAERS Safety Report 9252705 (Version 1)
Quarter: 2013Q2

REPORT INFORMATION
  Report Type: Report from Study
  Country: SE (occurrence: SE)
  Receive Date: 20130424
  Receipt Date: 20130424
  Transmission Date: 20140414
  Serious: Yes (Hospitalization)
  Sender: FDA-Public Use
  Company Number: SE-GLAXOSMITHKLINE-B0886758A

PATIENT
  Age: 74 Year
  Sex: Male
  Weight: 65.2 kg

DRUGS (15)
  1. ELTROMBOPAG [Suspect]
     Indication: MYELODYSPLASTIC SYNDROME
     Dosage: 200MG PER DAY
     Route: 048
     Dates: start: 20130318
  2. CARDIZEM RETARD [Concomitant]
  3. ZOPICLONE [Concomitant]
  4. SYMBICORT TURBOHALER [Concomitant]
     Route: 055
  5. SPIRIVA [Concomitant]
     Route: 055
  6. RINGERS ACETATE [Concomitant]
  7. IOMERON (IOMEPROL) [Concomitant]
  8. LAXOBERAL [Concomitant]
     Route: 048
  9. ERYTHROCYTE CONCENTRATE [Concomitant]
  10. ONDANSETRON [Concomitant]
  11. ORUDIS [Concomitant]
  12. TRADOLAN [Concomitant]
  13. ALVEDON FORTE [Concomitant]
  14. BRICANYL TURBUHALER [Concomitant]
  15. AERIUS [Concomitant]

REACTIONS (1)
  - Transient ischaemic attack [Recovering/Resolving]
